FAERS Safety Report 19750315 (Version 1)
Quarter: 2021Q3

REPORT INFORMATION
  Report Type: Spontaneous
  Country: US (occurrence: US)
  Receive Date: 20210826
  Receipt Date: 20210826
  Transmission Date: 20211014
  Serious: No
  Sender: FDA-Public Use
  Company Number: None

PATIENT
  Age: 94 Year
  Sex: Female
  Weight: 42.3 kg

DRUGS (2)
  1. EXTRA STRENGTH ACETAMINOPHEN PM [Suspect]
     Active Substance: ACETAMINOPHEN\DIPHENHYDRAMINE HYDROCHLORIDE
     Indication: PAIN
     Dosage: ?          QUANTITY:1 30 ML.;?
     Route: 048
     Dates: start: 20210824, end: 20210825
  2. EXTRA STRENGTH ACETAMINOPHEN PM [Suspect]
     Active Substance: ACETAMINOPHEN\DIPHENHYDRAMINE HYDROCHLORIDE
     Indication: SLEEP DISORDER
     Dosage: ?          QUANTITY:1 30 ML.;?
     Route: 048
     Dates: start: 20210824, end: 20210825

REACTIONS (5)
  - Chemical burn of respiratory tract [None]
  - Product substitution issue [None]
  - Dyspnoea [None]
  - Reaction to preservatives [None]
  - Chest pain [None]

NARRATIVE: CASE EVENT DATE: 20210824
